FAERS Safety Report 8956577 (Version 1)
Quarter: 2012Q4

REPORT INFORMATION
  Report Type: 
  Country: US (occurrence: US)
  Receive Date: 20121210
  Receipt Date: 20121210
  Transmission Date: 20130627
  Serious: No
  Sender: FDA-Public Use
  Company Number: US-PFIZER INC-2012306899

PATIENT
  Age: 79 Year
  Sex: Female
  Weight: 54.42 kg

DRUGS (2)
  1. CELEBREX [Suspect]
     Indication: INFLAMMATORY REACTION
     Dosage: UNK
  2. DOLOBID [Concomitant]
     Dosage: UNK

REACTIONS (1)
  - Platelet count decreased [Unknown]
